FAERS Safety Report 8801305 (Version 1)
Quarter: 2012Q4

REPORT INFORMATION
  Report Type: 
  Country: IL (occurrence: IL)
  Receive Date: 20120920
  Receipt Date: 20120920
  Transmission Date: 20130627
  Serious: Yes (Death, Hospitalization)
  Sender: FDA-Public Use
  Company Number: IL-TEVA-358597ISR

PATIENT
  Age: 59 Year
  Sex: Male

DRUGS (2)
  1. GEMCITABINE [Suspect]
     Indication: NON-SMALL CELL LUNG CANCER
     Dosage: 1000 mg/m2 given IV for 30 min on days 1, 8, and 15 of a 28-day cycle
     Route: 041
  2. ERLOTINIB [Suspect]
     Indication: NON-SMALL CELL LUNG CANCER
     Dosage: 150 mg/day was started 3 days after the first gemcitabine dose
     Route: 048

REACTIONS (3)
  - Interstitial lung disease [Fatal]
  - Acute respiratory failure [Fatal]
  - Anaemia [Unknown]
